FAERS Safety Report 24752739 (Version 1)
Quarter: 2024Q4

REPORT INFORMATION
  Report Type: Spontaneous
  Country: US (occurrence: None)
  Receive Date: 20241218
  Receipt Date: 20241218
  Transmission Date: 20250115
  Serious: Yes (Hospitalization)
  Sender: Public
  Company Number: None

PATIENT
  Age: 40 Year
  Sex: Male

DRUGS (1)
  1. DOVATO [Suspect]
     Active Substance: DOLUTEGRAVIR SODIUM\LAMIVUDINE
     Dosage: OTHER QUANTITY : 50/300MG;?FREQUENCY : DAILY;?
     Route: 048
     Dates: start: 202305

REACTIONS (2)
  - Osteomyelitis [None]
  - Abscess [None]

NARRATIVE: CASE EVENT DATE: 20241210
